FAERS Safety Report 8136793-X (Version None)
Quarter: 2012Q1

REPORT INFORMATION
  Report Type: 
  Country: None (occurrence: None)
  Receive Date: 20120214
  Receipt Date: 20120130
  Transmission Date: 20120608
  Serious: Yes (Hospitalization, Other)
  Sender: FDA-Public Use
  Company Number: US-WATSON-2012-02309

PATIENT
  Age: 50 Year
  Sex: Female

DRUGS (10)
  1. ETOPOSIDE [Suspect]
     Indication: ACUTE LYMPHOCYTIC LEUKAEMIA
     Dosage: AT 35 YEARS OF AGE
     Route: 065
  2. ELSPAR [Suspect]
  3. CYTARABINE [Suspect]
  4. VINCRISTINE [Suspect]
  5. CYCLOPHOSPHAMIDE [Suspect]
  6. GEMCITABINE [Suspect]
     Indication: BILE DUCT CANCER
     Dosage: AT 50 YEARS OF AGE (FIRST DOSE 800 MG/M[TO 2ND POWER])
     Route: 065
  7. GEMCITABINE [Suspect]
     Dosage: SECOND DOSE 600 MG/M[TO THE 2ND POWER] 16 DAYS AFTER FIRST DOSE
     Route: 065
  8. MITOXANTRONE [Suspect]
  9. PREDNISONE TAB [Suspect]
     Indication: ACUTE LYMPHOCYTIC LEUKAEMIA
     Dosage: AT 35 YEARS OF AGE
     Route: 065
  10. METHOTREXATE [Suspect]

REACTIONS (5)
  - DRUG ERUPTION [None]
  - RENAL FAILURE CHRONIC [None]
  - PERIPHERAL SENSORY NEUROPATHY [None]
  - THROMBOCYTOPENIA [None]
  - CARDIAC FAILURE CONGESTIVE [None]
